FAERS Safety Report 5418028-1 (Version None)
Quarter: 2007Q3

REPORT INFORMATION
  Report Type: 
  Country: None (occurrence: None)
  Receive Date: 20070817
  Receipt Date: 20070205
  Transmission Date: 20080115
  Serious: No
  Sender: FDA-Public Use
  Company Number: A0638346A

PATIENT

DRUGS (2)
  1. BEXXAR [Suspect]
     Indication: NON-HODGKIN'S LYMPHOMA
     Route: 042
  2. NO CONCURRENT MEDICATION [Concomitant]

REACTIONS (1)
  - CONDITION AGGRAVATED [None]
